FAERS Safety Report 9606974 (Version 1)
Quarter: 2013Q4

REPORT INFORMATION
  Report Type: Report from Study
  Country: DE (occurrence: DE)
  Receive Date: 20131008
  Receipt Date: 20131008
  Transmission Date: 20140711
  Serious: Yes (Death)
  Sender: FDA-Public Use
  Company Number: DE-ROCHE-1285709

PATIENT
  Age: 71 Year
  Sex: 0

DRUGS (4)
  1. BEVACIZUMAB [Suspect]
     Indication: COLON CANCER
     Dosage: SECOND LINE THERAPY
     Route: 065
     Dates: start: 201104, end: 201110
  2. FOLINIC ACID [Suspect]
     Indication: COLON CANCER
     Route: 065
     Dates: start: 201104, end: 201110
  3. 5-FLUOROURACIL [Suspect]
     Indication: COLON CANCER
     Route: 065
     Dates: start: 201104, end: 201110
  4. OXALIPLATIN [Suspect]
     Indication: COLON CANCER
     Route: 065

REACTIONS (1)
  - Death [Fatal]
